FAERS Safety Report 25299872 (Version 1)
Quarter: 2025Q2

REPORT INFORMATION
  Report Type: Spontaneous
  Country: FR (occurrence: FR)
  Receive Date: 20250512
  Receipt Date: 20250512
  Transmission Date: 20250717
  Serious: Yes (Hospitalization)
  Sender: ACCORD
  Company Number: None

PATIENT
  Age: 81 Year
  Sex: Male
  Weight: 90 kg

DRUGS (3)
  1. DAPTOMYCIN [Suspect]
     Active Substance: DAPTOMYCIN
     Indication: Post procedural fistula
     Dosage: 850MG/DAY
     Dates: start: 20250228, end: 20250310
  2. PIPERACILLIN [Suspect]
     Active Substance: PIPERACILLIN
     Indication: Post procedural fistula
     Dates: start: 20250228, end: 20250310
  3. TAZOBACTAM SODIUM [Suspect]
     Active Substance: TAZOBACTAM SODIUM
     Indication: Post procedural fistula
     Dates: start: 20250228, end: 20250310

REACTIONS (1)
  - Hypersensitivity pneumonitis [Recovering/Resolving]

NARRATIVE: CASE EVENT DATE: 20250307
